FAERS Safety Report 8351505-2 (Version None)
Quarter: 2012Q2

REPORT INFORMATION
  Report Type: 
  Country: None (occurrence: None)
  Receive Date: 20120511
  Receipt Date: 20120427
  Transmission Date: 20120825
  Serious: Yes (Death, Hospitalization, Disabling, Other)
  Sender: FDA-Public Use
  Company Number: US-MYLANLABS-2010AC000065

PATIENT
  Age: 52 Year
  Sex: Female

DRUGS (23)
  1. METOPROLOL TARTRATE [Concomitant]
  2. ENALAPRIL MALEATE [Concomitant]
  3. VITAMIN E [Concomitant]
  4. GLUCOPHAGE [Concomitant]
  5. ASPIRIN [Concomitant]
  6. ERYTHROMYCIN [Concomitant]
     Dosage: FOR 10 DAYS
  7. DIGOXIN [Suspect]
     Indication: PRODUCT USED FOR UNKNOWN INDICATION
     Route: 048
  8. INSULIN [Concomitant]
  9. ENALAPRIL MALEATE [Concomitant]
  10. ELAVIL [Concomitant]
  11. HUMULIN N [Concomitant]
     Dosage: 40 UNITS BEFORE BREAKFAST WITH REGULAR INSULIN 10 UNITS, 10 UNITS BEFORE DINNER
  12. CALCIUM [Concomitant]
  13. LIPITOR [Concomitant]
  14. LORTAB [Concomitant]
  15. SPIRONOLACTONE [Concomitant]
  16. LISINOPRIL [Concomitant]
  17. NEURONTIN [Concomitant]
  18. QUINAPRIL [Concomitant]
  19. DIABINESE [Concomitant]
  20. LIDOCAINE [Concomitant]
  21. METFORMIN HCL [Concomitant]
  22. LASIX [Concomitant]
  23. CLARITIN /00413701/ [Concomitant]

REACTIONS (52)
  - SYNCOPE [None]
  - SNORING [None]
  - SOCIAL AVOIDANT BEHAVIOUR [None]
  - LOSS OF EMPLOYMENT [None]
  - SKIN ULCER [None]
  - OBESITY [None]
  - SEASONAL ALLERGY [None]
  - DIABETIC RETINAL OEDEMA [None]
  - ARTHRALGIA [None]
  - POSTERIOR REVERSIBLE ENCEPHALOPATHY SYNDROME [None]
  - PAIN IN EXTREMITY [None]
  - SLEEP APNOEA SYNDROME [None]
  - SINUSITIS [None]
  - UPPER-AIRWAY COUGH SYNDROME [None]
  - TINEL'S SIGN [None]
  - RENAL FAILURE ACUTE [None]
  - CONSTIPATION [None]
  - BLINDNESS [None]
  - ABSCESS LIMB [None]
  - NASAL OEDEMA [None]
  - BLOOD GLUCOSE ABNORMAL [None]
  - ECONOMIC PROBLEM [None]
  - CEREBROVASCULAR ACCIDENT [None]
  - STASIS DERMATITIS [None]
  - CATARACT NUCLEAR [None]
  - BREAST CELLULITIS [None]
  - BREAST ABSCESS [None]
  - DYSLIPIDAEMIA [None]
  - TONSILLAR HYPERTROPHY [None]
  - EMOTIONAL DISTRESS [None]
  - DEATH [None]
  - PAIN [None]
  - CONVULSION [None]
  - TREATMENT NONCOMPLIANCE [None]
  - HYPERTENSION [None]
  - MICROALBUMINURIA [None]
  - LIVER FUNCTION TEST ABNORMAL [None]
  - LYMPHADENOPATHY [None]
  - INJURY [None]
  - CARDIAC FAILURE CONGESTIVE [None]
  - THYROID FUNCTION TEST ABNORMAL [None]
  - DISABILITY [None]
  - FATIGUE [None]
  - EXOSTOSIS [None]
  - SINUS HEADACHE [None]
  - BREAST INDURATION [None]
  - GLYCOSYLATED HAEMOGLOBIN INCREASED [None]
  - ILL-DEFINED DISORDER [None]
  - THERMAL BURN [None]
  - DIABETES MELLITUS INADEQUATE CONTROL [None]
  - DIABETIC RETINOPATHY [None]
  - UTERINE LEIOMYOMA [None]
